APPROVED DRUG PRODUCT: RANITIDINE HYDROCHLORIDE
Active Ingredient: RANITIDINE HYDROCHLORIDE
Strength: EQ 15MG BASE/ML
Dosage Form/Route: SYRUP;ORAL
Application: A079212 | Product #001
Applicant: WOCKHARDT LTD
Approved: Feb 23, 2009 | RLD: No | RS: No | Type: DISCN